FAERS Safety Report 7215520-4 (Version None)
Quarter: 2011Q1

REPORT INFORMATION
  Report Type: 
  Country: None (occurrence: None)
  Receive Date: 20110107
  Receipt Date: 20110104
  Transmission Date: 20110831
  Serious: Yes (Hospitalization)
  Sender: FDA-Public Use
  Company Number: B0691942A

PATIENT
  Age: 48 Year
  Sex: Female

DRUGS (2)
  1. AUGMENTIN [Suspect]
     Indication: PRODUCT USED FOR UNKNOWN INDICATION
     Dosage: 1TAB SINGLE DOSE
     Route: 048
  2. CLAMOXYL [Suspect]
     Indication: PRODUCT USED FOR UNKNOWN INDICATION
     Route: 050

REACTIONS (11)
  - ANGIOEDEMA [None]
  - DIARRHOEA [None]
  - SKIN REACTION [None]
  - FATIGUE [None]
  - ANAPHYLACTIC REACTION [None]
  - LOSS OF CONSCIOUSNESS [None]
  - CHEST DISCOMFORT [None]
  - TONGUE PRURITUS [None]
  - VOMITING [None]
  - ABDOMINAL PAIN [None]
  - MALAISE [None]
